FAERS Safety Report 7155582-6 (Version None)
Quarter: 2010Q4

REPORT INFORMATION
  Report Type: 
  Country: None (occurrence: None)
  Receive Date: 20101214
  Receipt Date: 20091116
  Transmission Date: 20110411
  Serious: No
  Sender: FDA-Public Use
  Company Number: US-AMGEN-KDL374883

PATIENT

DRUGS (9)
  1. ENBREL [Suspect]
     Indication: PRODUCT USED FOR UNKNOWN INDICATION
     Dosage: 25 MG, 2 TIMES/WK
     Route: 058
  2. UNSPECIFIED MEDICATION [Concomitant]
  3. NIASPAN [Concomitant]
  4. LEVOTHYROXINE SODIUM [Concomitant]
  5. ASCORBIC ACID [Concomitant]
  6. TOCOPHEROL CONCENTRATE CAP [Concomitant]
  7. COENZYME Q10 [Concomitant]
  8. FISH OIL [Concomitant]
  9. COLECALCIFEROL [Concomitant]

REACTIONS (1)
  - INFLUENZA [None]
